FAERS Safety Report 7588765-1 (Version None)
Quarter: 2011Q3

REPORT INFORMATION
  Report Type: 
  Country: None (occurrence: None)
  Receive Date: 20110705
  Receipt Date: 20110627
  Transmission Date: 20111222
  Serious: Yes (Death, Hospitalization)
  Sender: FDA-Public Use
  Company Number: FR-JNJFOC-20110610911

PATIENT
  Age: 56 Year
  Sex: Female
  Weight: 65 kg

DRUGS (8)
  1. NORVIR [Suspect]
     Indication: HIV INFECTION
     Route: 065
     Dates: start: 20110429, end: 20110619
  2. ACETAMINOPHEN [Concomitant]
     Indication: PARAESTHESIA
     Route: 048
     Dates: start: 20110527
  3. DEXERYL [Concomitant]
     Indication: PRURIGO
     Route: 061
     Dates: start: 20110328
  4. IMOVANE [Concomitant]
     Indication: INSOMNIA
     Route: 048
     Dates: start: 20110527
  5. COTRIM [Suspect]
     Indication: OPPORTUNISTIC INFECTION PROPHYLAXIS
     Route: 065
     Dates: start: 20110414, end: 20110620
  6. ISENTRESS [Suspect]
     Indication: HIV INFECTION
     Route: 065
     Dates: start: 20110429, end: 20110619
  7. ATARAX [Concomitant]
     Indication: PRURIGO
     Route: 048
     Dates: start: 20110328
  8. TMC114 [Suspect]
     Indication: HIV INFECTION
     Route: 048
     Dates: start: 20110429, end: 20110619

REACTIONS (2)
  - MULTI-ORGAN FAILURE [None]
  - DRUG RASH WITH EOSINOPHILIA AND SYSTEMIC SYMPTOMS [None]
